FAERS Safety Report 5620064-7 (Version None)
Quarter: 2008Q1

REPORT INFORMATION
  Report Type: 
  Country: None (occurrence: None)
  Receive Date: 20080208
  Receipt Date: 20080129
  Transmission Date: 20080703
  Serious: Yes (Hospitalization)
  Sender: FDA-Public Use
  Company Number: JP-ASTRAZENECA-2008SE00704

PATIENT
  Age: 59 Year
  Sex: Female

DRUGS (3)
  1. BLOPRESS TABLETS 2 [Suspect]
     Indication: HYPERTENSION
     Route: 048
     Dates: start: 20071031, end: 20080125
  2. NORVASC [Suspect]
     Route: 048
  3. TANATRIL [Suspect]
     Route: 048

REACTIONS (1)
  - BRADYCARDIA [None]
